FAERS Safety Report 16800481 (Version 1)
Quarter: 2019Q3

REPORT INFORMATION
  Report Type: Report from Study
  Country: IT (occurrence: IT)
  Receive Date: 20190912
  Receipt Date: 20190912
  Transmission Date: 20191005
  Serious: Yes (Other)
  Sender: FDA-Public Use
  Company Number: IT-PFIZER INC-2019384115

PATIENT
  Age: 9 Year
  Sex: Male
  Weight: 37 kg

DRUGS (19)
  1. DAUNOBLASTINA [Suspect]
     Active Substance: DAUNORUBICIN
     Indication: ACUTE LYMPHOCYTIC LEUKAEMIA
     Dosage: 35 MG, CYCLIC
     Route: 042
     Dates: start: 20181225, end: 20181225
  2. IFOSFAMIDE. [Suspect]
     Active Substance: IFOSFAMIDE
     Indication: ACUTE LYMPHOCYTIC LEUKAEMIA
     Dosage: 1872 MG, CYCLIC
     Route: 042
     Dates: start: 20181223, end: 20181224
  3. UROMITEXAN [Suspect]
     Active Substance: MESNA
     Indication: ACUTE LYMPHOCYTIC LEUKAEMIA
     Dosage: 2100 MG, CYCLIC
     Route: 042
     Dates: start: 20181223, end: 20181224
  4. BACTRIM [Concomitant]
     Active Substance: SULFAMETHOXAZOLE\TRIMETHOPRIM
     Dosage: 2 DF, CYCLIC
     Route: 048
  5. DECADRON [Concomitant]
     Active Substance: DEXAMETHASONE
     Dosage: 23.4 MG, 1X/DAY
     Route: 048
     Dates: start: 20181221, end: 20181226
  6. LEDERFOLIN [Concomitant]
     Active Substance: LEUCOVORIN CALCIUM
     Dosage: 54 MG, CYCLIC
     Route: 042
     Dates: start: 20181223, end: 20181224
  7. DEURSIL [Concomitant]
     Active Substance: URSODIOL
     Dosage: 300 MG, 1X/DAY
     Route: 048
     Dates: start: 20181228
  8. METHOTREXATE SODIUM. [Suspect]
     Active Substance: METHOTREXATE SODIUM
     Dosage: 5850 MG, CYCLIC
     Route: 042
     Dates: start: 20181115, end: 20181221
  9. ANTRA [OMEPRAZOLE] [Concomitant]
     Active Substance: OMEPRAZOLE
     Dosage: 20 MG, UNK
  10. MYCOSTATIN [Concomitant]
     Active Substance: NYSTATIN
     Dosage: 15 ML, 1X/DAY
     Route: 048
  11. METHOTREXATE SODIUM. [Suspect]
     Active Substance: METHOTREXATE SODIUM
     Indication: ACUTE LYMPHOCYTIC LEUKAEMIA
     Dosage: 12 MG, CYCLIC
     Route: 037
     Dates: start: 20181221, end: 20181221
  12. ONCASPAR [Suspect]
     Active Substance: PEGASPARGASE
     Indication: ACUTE LYMPHOCYTIC LEUKAEMIA
     Dosage: 2925 KIU, CYCLIC
     Route: 042
     Dates: start: 20181204, end: 20181226
  13. IFOSFAMIDE. [Suspect]
     Active Substance: IFOSFAMIDE
     Dosage: 936 MG, CYCLIC
     Route: 042
     Dates: start: 20181222, end: 20181222
  14. VINDESINE SULFATE [Suspect]
     Active Substance: VINDESINE SULFATE
     Indication: ACUTE LYMPHOCYTIC LEUKAEMIA
     Dosage: 3.5 MG, CYCLIC
     Route: 042
     Dates: start: 20181221, end: 20181226
  15. UROMITEXAN [Suspect]
     Active Substance: MESNA
     Dosage: 700 MG, CYCLIC
     Route: 042
     Dates: start: 20181225, end: 20181225
  16. LASIX [Concomitant]
     Active Substance: FUROSEMIDE
     Dosage: 40 MG, 1X/DAY
     Route: 042
  17. UROMITEXAN [Suspect]
     Active Substance: MESNA
     Dosage: 350 MG, CYCLIC
     Route: 042
     Dates: start: 20181222, end: 20181222
  18. DILATREND [Concomitant]
     Active Substance: CARVEDILOL
     Dosage: 3.12 MG, 1X/DAY
     Route: 048
  19. URBASON [METHYLPREDNISOLONE] [Concomitant]
     Active Substance: METHYLPREDNISOLONE
     Indication: PREMEDICATION
     Dosage: 10 MG, CYCLIC
     Route: 037
     Dates: start: 20181221, end: 20181221

REACTIONS (2)
  - Aplasia [Unknown]
  - Diarrhoea [Unknown]

NARRATIVE: CASE EVENT DATE: 20181231
